FAERS Safety Report 13675813 (Version 7)
Quarter: 2017Q3

REPORT INFORMATION
  Report Type: Spontaneous
  Country: JP (occurrence: JP)
  Receive Date: 20170621
  Receipt Date: 20170926
  Transmission Date: 20171127
  Serious: Yes (Hospitalization, Other)
  Sender: FDA-Public Use
  Company Number: PHJP2016JP017786

PATIENT
  Age: 62 Year
  Sex: Female
  Weight: 59.5 kg

DRUGS (7)
  1. PREDNISOLONE. [Suspect]
     Active Substance: PREDNISOLONE
     Indication: APLASTIC ANAEMIA
     Dosage: 25 MG, QD
     Route: 048
     Dates: start: 20121002, end: 20150909
  2. NEORAL [Suspect]
     Active Substance: CYCLOSPORINE
     Indication: APLASTIC ANAEMIA
     Dosage: 75 MG, BID
     Route: 048
     Dates: start: 20150106
  3. THYMOGLOBULINE [Suspect]
     Active Substance: LAPINE T-LYMPHOCYTE IMMUNE GLOBULIN
     Indication: APLASTIC ANAEMIA
     Dosage: 225 MG, QD
     Route: 041
     Dates: start: 20150727, end: 20150731
  4. PRIMOBOLAN-DEPOT [Concomitant]
     Active Substance: METHENOLONE ENANTHATE
     Indication: APLASTIC ANAEMIA
     Dosage: 5 MG, TID
     Route: 048
     Dates: start: 20150630, end: 20160801
  5. LANSOPRAZOLE. [Concomitant]
     Active Substance: LANSOPRAZOLE
     Indication: PROPHYLAXIS AGAINST GASTROINTESTINAL ULCER
     Dosage: 30 MG, QD
     Route: 048
     Dates: start: 20121002
  6. AMLODIPINE [Concomitant]
     Active Substance: AMLODIPINE BESYLATE
     Indication: HYPERTENSION
     Dosage: 2.5 MG, QD
     Route: 048
     Dates: start: 20150331
  7. GASTROM [Concomitant]
     Active Substance: ECABET SODIUM
     Indication: GASTRITIS PROPHYLAXIS
     Dosage: 1.5 MG, BID
     Route: 048
     Dates: start: 20150120, end: 20150930

REACTIONS (10)
  - Cerebral fungal infection [Recovering/Resolving]
  - Brain oedema [Recovering/Resolving]
  - Leukopenia [Unknown]
  - Product use in unapproved indication [Unknown]
  - Loss of consciousness [Recovered/Resolved]
  - CSF mononuclear cell count increased [Unknown]
  - CSF protein increased [Unknown]
  - Aspergillus test positive [Recovering/Resolving]
  - Neutropenia [Unknown]
  - Depressed level of consciousness [Unknown]

NARRATIVE: CASE EVENT DATE: 20150106
